FAERS Safety Report 8013028-X (Version None)
Quarter: 2011Q4

REPORT INFORMATION
  Report Type: 
  Country: None (occurrence: None)
  Receive Date: 20111223
  Receipt Date: 20111223
  Transmission Date: 20120403
  Serious: Yes (Hospitalization)
  Sender: FDA-Public Use
  Company Number: None

PATIENT
  Age: 89 Year
  Sex: Male
  Weight: 76.4 kg

DRUGS (1)
  1. LEVOFLOXACIN [Suspect]
     Indication: CHOLECYSTITIS
     Dosage: 500 MG EVERY DAY PO
     Route: 048
     Dates: start: 20111010, end: 20111021

REACTIONS (3)
  - TENDON RUPTURE [None]
  - FALL [None]
  - CLOSTRIDIAL INFECTION [None]
